FAERS Safety Report 20614795 (Version 1)
Quarter: 2022Q1

REPORT INFORMATION
  Report Type: Spontaneous
  Country: GB (occurrence: GB)
  Receive Date: 20220321
  Receipt Date: 20220321
  Transmission Date: 20220424
  Serious: Yes (Other)
  Sender: FDA-Public Use
  Company Number: GB-LUPIN PHARMACEUTICALS INC.-2022-03708

PATIENT
  Age: 3 Year
  Sex: Male

DRUGS (6)
  1. LAMOTRIGINE [Suspect]
     Active Substance: LAMOTRIGINE
     Indication: Myoclonic epilepsy
     Dosage: UNK
     Route: 065
  2. LAMOTRIGINE [Suspect]
     Active Substance: LAMOTRIGINE
     Indication: Petit mal epilepsy
  3. CLOBAZAM [Suspect]
     Active Substance: CLOBAZAM
     Indication: Myoclonic epilepsy
     Dosage: UNK
     Route: 065
  4. CLOBAZAM [Suspect]
     Active Substance: CLOBAZAM
     Indication: Petit mal epilepsy
  5. ZONISAMIDE [Suspect]
     Active Substance: ZONISAMIDE
     Indication: Myoclonic epilepsy
     Dosage: UNK
     Route: 065
  6. ZONISAMIDE [Suspect]
     Active Substance: ZONISAMIDE
     Indication: Petit mal epilepsy

REACTIONS (1)
  - Drug ineffective [Unknown]
